FAERS Safety Report 4490758-8 (Version None)
Quarter: 2004Q4

REPORT INFORMATION
  Report Type: 
  Country: None (occurrence: None)
  Receive Date: 20041102
  Receipt Date: 20030619
  Transmission Date: 20050328
  Serious: Yes (Hospitalization)
  Sender: FDA-Public Use
  Company Number: PHBS2003JP06549

PATIENT
  Age: 39 Year
  Sex: Female
  Weight: 60 kg

DRUGS (7)
  1. GLEEVEC [Suspect]
     Indication: CHRONIC MYELOID LEUKAEMIA
     Dosage: 400 MG, QD
     Route: 048
     Dates: start: 20030102, end: 20030609
  2. VALTREX [Concomitant]
     Dosage: 3 G/D
     Route: 048
     Dates: start: 20030219, end: 20030225
  3. LOXONIN [Concomitant]
     Dosage: 3 DF/D
     Route: 048
     Dates: start: 20030226, end: 20030304
  4. ULCERLMIN [Concomitant]
     Dosage: 3 G/D
     Route: 048
     Dates: start: 20030226, end: 20030506
  5. SELBEX [Concomitant]
     Dosage: 3 DF/D
     Route: 048
     Dates: start: 20030423, end: 20030610
  6. PL GRAN. [Concomitant]
     Dosage: 3 G/D
     Route: 048
     Dates: start: 20030607, end: 20030610
  7. CRAVIT [Concomitant]
     Dosage: 200 MG/D
     Route: 048
     Dates: start: 20030607, end: 20030610

REACTIONS (22)
  - ALANINE AMINOTRANSFERASE INCREASED [None]
  - ANAEMIA [None]
  - ASPARTATE AMINOTRANSFERASE INCREASED [None]
  - BLOOD BILIRUBIN INCREASED [None]
  - BLOOD LACTATE DEHYDROGENASE INCREASED [None]
  - COAGULOPATHY [None]
  - DRUG TOXICITY [None]
  - FATIGUE [None]
  - HAEMATEMESIS [None]
  - HEPATIC FUNCTION ABNORMAL [None]
  - HEPATIC VEIN OCCLUSION [None]
  - HEPATOCELLULAR DAMAGE [None]
  - HYPERSENSITIVITY [None]
  - INJURY [None]
  - LEUKOPENIA [None]
  - LIVER DISORDER [None]
  - LIVER TENDERNESS [None]
  - MALLORY-WEISS SYNDROME [None]
  - NAUSEA [None]
  - PROSTRATION [None]
  - PROTHROMBIN TIME PROLONGED [None]
  - UPPER RESPIRATORY TRACT INFECTION [None]
